FAERS Safety Report 10035718 (Version 1)
Quarter: 2014Q1

REPORT INFORMATION
  Report Type: Report from Study
  Country: ES (occurrence: ES)
  Receive Date: 20140325
  Receipt Date: 20140325
  Transmission Date: 20141002
  Serious: Yes (Other)
  Sender: FDA-Public Use
  Company Number: ES-VERTEX PHARMACEUTICALS INC-2014-001488

PATIENT
  Age: 58 Year
  Sex: Female
  Weight: 90 kg

DRUGS (10)
  1. TELAPREVIR [Suspect]
     Indication: CHRONIC HEPATITIS C
     Dosage: 750 MG, TID
     Route: 048
  2. PEGINTERFERON ALFA-2A [Suspect]
     Indication: CHRONIC HEPATITIS C
  3. RIBAVIRIN [Suspect]
     Indication: CHRONIC HEPATITIS C
  4. RIBAVIRIN [Suspect]
     Dosage: 1000 MG, UNK
  5. RIBAVIRIN [Suspect]
  6. RIBAVIRIN [Suspect]
  7. ENALAPRIL [Concomitant]
     Indication: HYPERTENSION
  8. DIURETICS [Concomitant]
     Indication: HYPERTENSION
  9. INCIVO [Suspect]
     Indication: HEPATITIS C
     Route: 048
  10. INCIVO [Suspect]
     Indication: CHRONIC HEPATITIS C

REACTIONS (3)
  - Neutrophil count decreased [Unknown]
  - Haemoglobin decreased [Unknown]
  - Platelet count decreased [Unknown]
